FAERS Safety Report 25615610 (Version 1)
Quarter: 2025Q3

REPORT INFORMATION
  Report Type: Spontaneous
  Country: GB (occurrence: GB)
  Receive Date: 20250729
  Receipt Date: 20250729
  Transmission Date: 20251020
  Serious: Yes (Hospitalization, Other)
  Sender: IDORSIA PHARMACEUTICALS
  Company Number: GB-MHRA-MIDB-dddc6388-344e-4b63-9ea5-0a4e517bd06b

PATIENT
  Age: 53 Year
  Sex: Male

DRUGS (14)
  1. QUVIVIQ [Suspect]
     Active Substance: DARIDOREXANT
     Indication: Product used for unknown indication
     Dosage: 25 MG, QD
     Route: 048
     Dates: start: 20250125
  2. DEPAKOTE [Concomitant]
     Active Substance: DIVALPROEX SODIUM
     Dates: start: 20250507
  3. LORAZEPAM [Concomitant]
     Active Substance: LORAZEPAM
     Dates: start: 20250317
  4. LORAZEPAM [Concomitant]
     Active Substance: LORAZEPAM
     Dates: start: 20250428
  5. ACETAMINOPHEN [Concomitant]
     Active Substance: ACETAMINOPHEN
     Dates: start: 20250428
  6. LANSOPRAZOLE [Concomitant]
     Active Substance: LANSOPRAZOLE
     Dosage: ONE TO BE TAKEN EACH MORNING
     Dates: start: 20250507
  7. CHOLECALCIFEROL [Concomitant]
     Active Substance: CHOLECALCIFEROL
     Dates: start: 20250428
  8. ARIPIPRAZOLE [Concomitant]
     Active Substance: ARIPIPRAZOLE
     Dosage: 10 MG, QD
     Dates: start: 20250428
  9. BUTYLSCOPOLAMINE BROMIDE [Concomitant]
     Active Substance: BUTYLSCOPOLAMINE BROMIDE
     Dosage: 10 MG, TID (EVERY 8 HUORS)
     Dates: start: 20250428
  10. FLUCLOXACILLIN [Concomitant]
     Active Substance: FLUCLOXACILLIN
     Dosage: 500 MG, QID (EVERY 6 HOURS) (7/7 COURSE-NOT COMPLETED)
     Dates: start: 20250512
  11. PERMETHRIN [Concomitant]
     Active Substance: PERMETHRIN
     Dates: start: 20250402
  12. IBUPROFEN [Concomitant]
     Active Substance: IBUPROFEN
     Dosage: 400 MG TABLETS ONE TO BE TAKEN THREE TIMES A DAY AFTER FOOD 48 TABLET- TAKES REGULARLY IN SUPPORTED
     Dates: start: 20250507
  13. IBUPROFEN [Concomitant]
     Active Substance: IBUPROFEN
     Dosage: 400 MG TABLETS ONE TO BE TAKEN THREE TIMES A DAY AFTER FOOD 48 TABLET
     Dates: start: 20250411
  14. SPIKEVAX [Concomitant]
     Active Substance: CX-046684
     Indication: COVID-19
     Dates: start: 20250423, end: 20250423

REACTIONS (2)
  - Seizure [Unknown]
  - Hyponatraemia [Recovered/Resolved]

NARRATIVE: CASE EVENT DATE: 20250525
